FAERS Safety Report 4313271-7 (Version None)
Quarter: 2004Q1

REPORT INFORMATION
  Report Type: 
  Country: None (occurrence: None)
  Receive Date: 20040227
  Receipt Date: 20040204
  Transmission Date: 20041129
  Serious: Yes (Other)
  Sender: FDA-Public Use
  Company Number: 20029514-M03K18015-1

PATIENT

DRUGS (1)
  1. CPD BLOOD-PACK UNIT [Suspect]
     Dosage: BPU FOR INTRAVENOUS USE
     Route: 042

REACTIONS (1)
  - PHARMACEUTICAL PRODUCT COMPLAINT [None]
